FAERS Safety Report 16464589 (Version 4)
Quarter: 2022Q4

REPORT INFORMATION
  Report Type: Spontaneous
  Country: JP (occurrence: None)
  Receive Date: 20190621
  Receipt Date: 20221116
  Transmission Date: 20230113
  Serious: Yes (Other)
  Sender: FDA-Public Use
  Company Number: 2019SE64731

PATIENT
  Age: 40 Year
  Sex: Male
  Weight: 92 kg

DRUGS (11)
  1. FASENRA [Suspect]
     Active Substance: BENRALIZUMAB
     Indication: Asthma
     Dosage: 30 MG ONCE EVERY TWO MONTHS
     Route: 058
     Dates: start: 201901
  2. MONTELUKAST [Concomitant]
     Active Substance: MONTELUKAST SODIUM
     Indication: Asthma
     Route: 048
     Dates: start: 20160330
  3. SLO-BID [Concomitant]
     Active Substance: THEOPHYLLINE ANHYDROUS
     Indication: Asthma
     Route: 048
     Dates: start: 20141203
  4. ALLELOCK [Concomitant]
     Active Substance: OLOPATADINE HYDROCHLORIDE
     Indication: Asthma
     Route: 048
     Dates: start: 20150930
  5. FLUTICASONE FUROATE\VILANTEROL TRIFENATATE [Concomitant]
     Active Substance: FLUTICASONE FUROATE\VILANTEROL TRIFENATATE
     Indication: Asthma
     Dosage: METERED-DOSE POWDER FOR INHALATION
     Route: 055
     Dates: start: 20160316
  6. REBAMIPIDE [Concomitant]
     Active Substance: REBAMIPIDE
     Indication: Dry eye
     Dosage: WHEN DRY
     Route: 031
  7. DIQUAFOSOL TETRASODIUM [Concomitant]
     Active Substance: DIQUAFOSOL TETRASODIUM
     Indication: Dry eye
     Dosage: WHEN DRY
     Route: 031
  8. TACROLIMUS [Concomitant]
     Active Substance: TACROLIMUS
     Dosage: FOR LEFT EYE FOUR TIMES/DAY
  9. BERBESOLONE [Concomitant]
     Dosage: FOR BOTH EYES SIX TIMES/DAY
  10. DORMOLOL [Concomitant]
     Dosage: FOR BOTH EYES TWO TIMES/DAY
  11. UNSPECIFIED INGREDIENT [Concomitant]
     Active Substance: UNSPECIFIED INGREDIENT
     Dosage: FOR LEFT MASSES TWO TO FOUR TIMES/DAY

REACTIONS (2)
  - Vernal keratoconjunctivitis [Not Recovered/Not Resolved]
  - Dry eye [Unknown]

NARRATIVE: CASE EVENT DATE: 20190101
